FAERS Safety Report 8811186 (Version 1)
Quarter: 2012Q4

REPORT INFORMATION
  Report Type: 
  Country: US (occurrence: US)
  Receive Date: 20120927
  Receipt Date: 20120927
  Transmission Date: 20130627
  Serious: Yes (Hospitalization)
  Sender: FDA-Public Use
  Company Number: US-BAYER-2012-099517

PATIENT
  Age: 18 Year
  Sex: Female

DRUGS (10)
  1. YAZ [Suspect]
  2. YASMIN [Suspect]
  3. OCELLA [Suspect]
  4. EFFEXOR [Concomitant]
  5. ALBUTEROL [Concomitant]
  6. CLONAZEPAM [Concomitant]
     Dosage: 1 mg, UNK
     Dates: start: 200910
  7. SOLU-MEDROL [Concomitant]
     Route: 042
  8. MAGNESIUM [Concomitant]
  9. STEROID [Concomitant]
  10. PREDNISONE [Concomitant]
     Indication: ASTHMA

REACTIONS (1)
  - Pulmonary embolism [None]
